FAERS Safety Report 7829386-2 (Version None)
Quarter: 2011Q4

REPORT INFORMATION
  Report Type: 
  Country: None (occurrence: None)
  Receive Date: 20111020
  Receipt Date: 20110921
  Transmission Date: 20120403
  Serious: Yes (Disabling)
  Sender: FDA-Public Use
  Company Number: FR-ROCHE-1002471

PATIENT
  Sex: Female
  Weight: 59 kg

DRUGS (4)
  1. SYMBICORT [Concomitant]
  2. CLARITIN [Concomitant]
  3. SINGULAIR [Concomitant]
  4. XOLAIR [Suspect]
     Indication: ASTHMA
     Dates: start: 20110103

REACTIONS (8)
  - JAUNDICE [None]
  - FEELING COLD [None]
  - WEIGHT INCREASED [None]
  - FATIGUE [None]
  - HEADACHE [None]
  - BLOOD PRESSURE SYSTOLIC INCREASED [None]
  - MYALGIA [None]
  - FEELING HOT [None]
